FAERS Safety Report 4873358-7 (Version None)
Quarter: 2006Q1

REPORT INFORMATION
  Report Type: 
  Country: None (occurrence: None)
  Receive Date: 20060105
  Receipt Date: 20051212
  Transmission Date: 20060701
  Serious: Yes (Hospitalization, Disabling)
  Sender: FDA-Public Use
  Company Number: DE-ROCHE-428041

PATIENT
  Age: 66 Year
  Sex: Female
  Weight: 63 kg

DRUGS (2)
  1. CAPECITABINE [Suspect]
     Indication: BREAST CANCER
     Dosage: ADMINISTERED FROM DAYS 1 TO 14 IN A 21 DAY CYCLE.
     Route: 048
     Dates: start: 20051017, end: 20051120
  2. IBANDRONIC ACID [Suspect]
     Indication: BREAST CANCER
     Route: 042
     Dates: start: 20051017, end: 20051114

REACTIONS (3)
  - DIARRHOEA [None]
  - PYREXIA [None]
  - VOMITING [None]
